FAERS Safety Report 11320806 (Version 1)
Quarter: 2015Q3

REPORT INFORMATION
  Report Type: Spontaneous
  Country: AT (occurrence: AT)
  Receive Date: 20150729
  Receipt Date: 20150729
  Transmission Date: 20151125
  Serious: Yes (Death, Other)
  Sender: FDA-Public Use
  Company Number: AT-CELGENE-009-20785-10070158

PATIENT

DRUGS (5)
  1. THALIDOMIDE [Suspect]
     Active Substance: THALIDOMIDE
     Indication: PLASMA CELL MYELOMA
     Dosage: 100 MILLIGRAM
     Route: 048
  2. CYCLOPHOSPHAMID [Suspect]
     Active Substance: CYCLOPHOSPHAMIDE
     Indication: PLASMA CELL MYELOMA
     Route: 041
  3. DEXAMETHASONE. [Suspect]
     Active Substance: DEXAMETHASONE
     Indication: PLASMA CELL MYELOMA
     Route: 065
  4. BORTEZOMIB [Suspect]
     Active Substance: BORTEZOMIB
     Indication: PLASMA CELL MYELOMA
     Route: 065
  5. BISPHOSPHONATES [Concomitant]
     Active Substance: UNSPECIFIED INGREDIENT
     Indication: PROPHYLAXIS
     Route: 065

REACTIONS (21)
  - Plasma cell myeloma [Fatal]
  - Neutropenia [Unknown]
  - Fatigue [Unknown]
  - Multi-organ failure [Fatal]
  - Sepsis [Fatal]
  - Deep vein thrombosis [Unknown]
  - Leukopenia [Unknown]
  - Anaemia [Unknown]
  - Pneumonia [Fatal]
  - Constipation [Unknown]
  - Neuropathy peripheral [Unknown]
  - Oedema peripheral [Unknown]
  - Herpes zoster [Unknown]
  - Infection [Unknown]
  - Paraesthesia [Unknown]
  - Cardio-respiratory arrest [Fatal]
  - Thrombocytopenia [Unknown]
  - Asthenia [Unknown]
  - Musculoskeletal pain [Unknown]
  - Pyrexia [Unknown]
  - Lymphopenia [Unknown]
